FAERS Safety Report 6175745-6 (Version None)
Quarter: 2009Q2

REPORT INFORMATION
  Report Type: 
  Country: None (occurrence: None)
  Receive Date: 20090501
  Receipt Date: 20090428
  Transmission Date: 20091009
  Serious: Yes (Life-Threatening, Hospitalization)
  Sender: FDA-Public Use
  Company Number: FR-ASTRAZENECA-2009CG00838

PATIENT
  Age: 25285 Day
  Sex: Female

DRUGS (1)
  1. NOLVADEX [Suspect]
     Indication: BREAST CANCER FEMALE
     Route: 048
     Dates: start: 19990101, end: 20040101

REACTIONS (1)
  - ACUTE LYMPHOCYTIC LEUKAEMIA [None]
